FAERS Safety Report 4682276-9 (Version None)
Quarter: 2005Q2

REPORT INFORMATION
  Report Type: 
  Country: None (occurrence: None)
  Receive Date: 20050606
  Receipt Date: 20050530
  Transmission Date: 20051028
  Serious: Yes (Life-Threatening)
  Sender: FDA-Public Use
  Company Number: PHBS2005IT07590

PATIENT
  Age: 90 Year
  Sex: Male

DRUGS (3)
  1. SEROQUEL [Concomitant]
     Dosage: 150 MG, UNK
  2. LORTAAN [Concomitant]
  3. IGROTON-LOPRESOR [Suspect]
     Indication: VENTRICULAR EXTRASYSTOLES
     Dosage: 75 MG, QD
     Route: 048
     Dates: start: 20050401, end: 20050515

REACTIONS (3)
  - ATRIOVENTRICULAR BLOCK COMPLETE [None]
  - SYNCOPE [None]
  - VENTRICULAR ASYSTOLE [None]
